FAERS Safety Report 19656797 (Version 1)
Quarter: 2021Q3

REPORT INFORMATION
  Report Type: Spontaneous
  Country: US (occurrence: US)
  Receive Date: 20210804
  Receipt Date: 20210804
  Transmission Date: 20211014
  Serious: Yes (Other)
  Sender: FDA-Public Use
  Company Number: US-PURDUE-USA-2020-0280429

PATIENT
  Sex: Female
  Weight: 194 kg

DRUGS (1)
  1. TRAMADOL CR TABLETS (RHODES 21?745) [Suspect]
     Active Substance: TRAMADOL
     Indication: PRODUCT USED FOR UNKNOWN INDICATION
     Dosage: 50 MG, BID PRN
     Route: 048

REACTIONS (4)
  - Accident [Unknown]
  - Pain [Unknown]
  - Drug dependence [Unknown]
  - Overdose [Unknown]
